FAERS Safety Report 19948850 (Version 1)
Quarter: 2021Q4

REPORT INFORMATION
  Report Type: Spontaneous
  Country: US (occurrence: US)
  Receive Date: 20211008
  Receipt Date: 20211008
  Transmission Date: 20220303
  Serious: Yes (Death, Hospitalization)
  Sender: FDA-Public Use
  Company Number: None

PATIENT
  Age: 76 Year
  Sex: Female
  Weight: 110.76 kg

DRUGS (2)
  1. CARBOPLATIN [Suspect]
     Active Substance: CARBOPLATIN
     Dates: end: 20210818
  2. TAXOL [Suspect]
     Active Substance: PACLITAXEL
     Dates: end: 20210818

REACTIONS (3)
  - Acute respiratory distress syndrome [None]
  - Atypical pneumonia [None]
  - Pneumonitis [None]

NARRATIVE: CASE EVENT DATE: 20211005
